FAERS Safety Report 7706079-3 (Version None)
Quarter: 2011Q3

REPORT INFORMATION
  Report Type: 
  Country: None (occurrence: None)
  Receive Date: 20110824
  Receipt Date: 20110822
  Transmission Date: 20111222
  Serious: Yes (Other)
  Sender: FDA-Public Use
  Company Number: PHHY2011CH60724

PATIENT
  Age: 33 Year
  Sex: Female

DRUGS (6)
  1. VOLTAREN [Suspect]
     Dosage: 50 MG DAILY, PRN
     Route: 048
     Dates: start: 20110527
  2. MYDOCALM [Suspect]
     Dosage: 150 MG DAILY, PRN
     Dates: start: 20110527
  3. TOPAMAX [Suspect]
     Indication: MIGRAINE
     Dosage: 200 MG, DAILY
     Dates: start: 20100801, end: 20110527
  4. TOPAMAX [Suspect]
     Dosage: 200 MG DAILY, PRN
     Dates: start: 20110527
  5. VOLTAREN [Suspect]
     Indication: MIGRAINE
     Dosage: 50 MG, DAILY
     Route: 048
     Dates: start: 20100801, end: 20110527
  6. MYDOCALM [Suspect]
     Indication: MIGRAINE
     Dosage: 150 MG DAILY
     Dates: start: 20100801, end: 20110527

REACTIONS (2)
  - MATERNAL EXPOSURE DURING PREGNANCY [None]
  - ABORTION SPONTANEOUS [None]
